FAERS Safety Report 5430522-6 (Version None)
Quarter: 2007Q3

REPORT INFORMATION
  Report Type: 
  Country: None (occurrence: None)
  Receive Date: 20070830
  Receipt Date: 20070821
  Transmission Date: 20080115
  Serious: Yes (Hospitalization)
  Sender: FDA-Public Use
  Company Number: DE-ELI_LILLY_AND_COMPANY-DE200708004643

PATIENT
  Age: 72 Year
  Sex: Female

DRUGS (3)
  1. FORTEO [Suspect]
     Indication: OSTEOPOROSIS
     Dosage: UNK, UNKNOWN
     Route: 065
     Dates: start: 20050401, end: 20061001
  2. BISOPROLOL [Concomitant]
     Dosage: 1/4 OF 10 MG TABLET, DAILY (1/D)
     Route: 065
  3. ISOSORBIDE DINITRATE [Concomitant]
     Indication: CARDIAC DISORDER
     Dosage: 40 UNK, UNKNOWN
     Route: 065

REACTIONS (1)
  - BREAST CANCER [None]
